FAERS Safety Report 20571389 (Version 3)
Quarter: 2025Q1

REPORT INFORMATION
  Report Type: Spontaneous
  Country: US (occurrence: US)
  Receive Date: 20220309
  Receipt Date: 20250312
  Transmission Date: 20250409
  Serious: Yes (Other)
  Sender: SANOFI AVENTIS
  Company Number: US-SANOFI-00996425

PATIENT
  Age: 48 Year
  Sex: Female

DRUGS (12)
  1. DUPIXENT [Suspect]
     Active Substance: DUPILUMAB
     Indication: Asthma
     Dosage: 300 MG, QOW
     Route: 058
     Dates: start: 20210920
  2. DUPIXENT [Suspect]
     Active Substance: DUPILUMAB
     Indication: Nasal polyps
  3. SINUVA [Concomitant]
     Active Substance: MOMETASONE FUROATE
     Route: 045
  4. BUDESONIDE [Concomitant]
     Active Substance: BUDESONIDE
  5. HUMALOG [Concomitant]
     Active Substance: INSULIN LISPRO
  6. EPIPEN [Concomitant]
     Active Substance: EPINEPHRINE
  7. MAGNESIUM [Concomitant]
     Active Substance: MAGNESIUM
  8. LANTUS [Concomitant]
     Active Substance: INSULIN GLARGINE
  9. ALBUTEROL SULFATE [Concomitant]
     Active Substance: ALBUTEROL SULFATE
  10. BREO ELLIPTA [Concomitant]
     Active Substance: FLUTICASONE FUROATE\VILANTEROL TRIFENATATE
  11. ASPIRIN [Concomitant]
     Active Substance: ASPIRIN
  12. PRILOSEC [Concomitant]
     Active Substance: OMEPRAZOLE MAGNESIUM

REACTIONS (5)
  - Pneumonia [Not Recovered/Not Resolved]
  - Weight increased [Not Recovered/Not Resolved]
  - Asthma [Not Recovered/Not Resolved]
  - Wheezing [Unknown]
  - Sinusitis [Unknown]
